FAERS Safety Report 23408162 (Version 3)
Quarter: 2024Q2

REPORT INFORMATION
  Report Type: Spontaneous
  Country: US (occurrence: US)
  Receive Date: 20240117
  Receipt Date: 20240405
  Transmission Date: 20240716
  Serious: No
  Sender: FDA-Public Use
  Company Number: US-GSKCCFUS-Case-01905304_AE-106221

PATIENT
  Age: 86 Year
  Sex: Female

DRUGS (2)
  1. TRELEGY ELLIPTA [Suspect]
     Active Substance: FLUTICASONE FUROATE\UMECLIDINIUM BROMIDE\VILANTEROL TRIFENATATE
     Indication: Product used for unknown indication
     Dosage: 200/62.5/25MCG
     Dates: start: 20240111
  2. LEXAPRO [Concomitant]
     Active Substance: ESCITALOPRAM OXALATE
     Indication: Dizziness
     Dosage: 5 MG

REACTIONS (4)
  - Headache [Not Recovered/Not Resolved]
  - Dyspnoea [Unknown]
  - Dry skin [Unknown]
  - Product confusion [Unknown]

NARRATIVE: CASE EVENT DATE: 20240303
